FAERS Safety Report 4535224-6 (Version None)
Quarter: 2004Q4

REPORT INFORMATION
  Report Type: 
  Country: None (occurrence: None)
  Receive Date: 20041214
  Receipt Date: 20041005
  Transmission Date: 20050328
  Serious: No
  Sender: FDA-Public Use
  Company Number: 200438232US

PATIENT

DRUGS (1)
  1. BEXTRA [Suspect]
     Dates: start: 20040121

REACTIONS (3)
  - BLINDNESS [None]
  - OCULAR VASCULAR DISORDER [None]
  - VISION BLURRED [None]
